FAERS Safety Report 7639807-6 (Version None)
Quarter: 2011Q3

REPORT INFORMATION
  Report Type: 
  Country: None (occurrence: None)
  Receive Date: 20110727
  Receipt Date: 20110725
  Transmission Date: 20111222
  Serious: No
  Sender: FDA-Public Use
  Company Number: US-PFIZER INC-2011092202

PATIENT
  Sex: Male
  Weight: 99.773 kg

DRUGS (7)
  1. ROBITUSSIN COUGH + COLD CF [Concomitant]
     Indication: COUGH
     Dosage: UNK
  2. CHANTIX [Suspect]
     Dosage: 1 MG, 2X/DAY
     Route: 048
     Dates: start: 20110401, end: 20110601
  3. CODEINE [Concomitant]
     Dosage: UNK
  4. CHANTIX [Suspect]
     Indication: SMOKING CESSATION THERAPY
     Dosage: 0.5 MG, 1X/DAY
     Route: 048
     Dates: start: 20110422, end: 20110401
  5. CODEINE AND GUAIFENESIN [Concomitant]
     Dosage: UNK
     Dates: start: 20110421
  6. CHANTIX [Suspect]
     Dosage: 0.5 MG, 2X/DAY
     Dates: start: 20110401, end: 20110429
  7. ZITHROMAX [Concomitant]
     Dosage: UNK, 2 PACKS
     Dates: start: 20110421

REACTIONS (1)
  - HYPOAESTHESIA ORAL [None]
